FAERS Safety Report 5312406-7 (Version None)
Quarter: 2007Q2

REPORT INFORMATION
  Report Type: 
  Country: None (occurrence: None)
  Receive Date: 20070430
  Receipt Date: 20061011
  Transmission Date: 20071010
  Serious: No
  Sender: FDA-Public Use
  Company Number: 2006UW19711

PATIENT
  Age: 59 Year
  Sex: Male
  Weight: 86.2 kg

DRUGS (5)
  1. NEXIUM [Suspect]
     Indication: NON-CARDIAC CHEST PAIN
     Route: 048
  2. NEXIUM [Suspect]
     Indication: GASTROOESOPHAGEAL REFLUX DISEASE
     Route: 048
  3. ATACAND [Concomitant]
     Route: 048
  4. ASPIRIN [Concomitant]
  5. PLAVIX [Concomitant]

REACTIONS (2)
  - PAIN IN EXTREMITY [None]
  - STOMACH DISCOMFORT [None]
